FAERS Safety Report 4327670-0 (Version None)
Quarter: 2004Q1

REPORT INFORMATION
  Report Type: 
  Country: None (occurrence: None)
  Receive Date: 20040331
  Receipt Date: 20030204
  Transmission Date: 20041129
  Serious: Yes (Hospitalization)
  Sender: FDA-Public Use
  Company Number: US-GLAXOSMITHKLINE-A0395409A

PATIENT
  Age: 41 Year
  Sex: Male

DRUGS (2)
  1. AMERGE [Suspect]
     Indication: CLUSTER HEADACHE
     Dosage: 2.5MG AS REQUIRED
     Route: 048
     Dates: start: 20021201
  2. NO CONCURRENT MEDICATION [Concomitant]

REACTIONS (1)
  - MYOCARDIAL INFARCTION [None]
